FAERS Safety Report 6826118-1 (Version None)
Quarter: 2010Q3

REPORT INFORMATION
  Report Type: 
  Country: None (occurrence: None)
  Receive Date: 20100709
  Receipt Date: 20100702
  Transmission Date: 20110219
  Serious: Yes (Death, Hospitalization)
  Sender: FDA-Public Use
  Company Number: CN-ELI_LILLY_AND_COMPANY-CN201005001988

PATIENT
  Sex: Male
  Weight: 66.5 kg

DRUGS (7)
  1. PEMETREXED [Suspect]
     Indication: NON-SMALL CELL LUNG CANCER STAGE III
     Dosage: 500 MG/M2, EVERY 21 DAYS
     Route: 042
     Dates: start: 20091214, end: 20100125
  2. PEMETREXED [Suspect]
     Dosage: 500 MG/M2, EVERY 21 DAYS
     Route: 042
     Dates: start: 20100222
  3. CISPLATIN [Suspect]
     Indication: NON-SMALL CELL LUNG CANCER STAGE III
     Dosage: 75 MG/M2, EVERY 21 DAYS
     Route: 042
     Dates: start: 20091214, end: 20100125
  4. RADIATION [Suspect]
     Indication: NON-SMALL CELL LUNG CANCER STAGE III
     Dosage: 2 GY DAILY, FIVE DAYS A WEEK
     Dates: start: 20091214, end: 20100126
  5. FOLIC ACID [Concomitant]
     Indication: PROPHYLAXIS
     Dates: start: 20091207, end: 20100406
  6. VITAMIN B-12 [Concomitant]
     Indication: PROPHYLAXIS
     Dates: start: 20091207, end: 20100220
  7. DEXAMETHASONE [Concomitant]
     Indication: PROPHYLAXIS
     Dates: start: 20091213, end: 20100316

REACTIONS (3)
  - HYPOXIA [None]
  - PNEUMONITIS [None]
  - RESPIRATORY FAILURE [None]
